FAERS Safety Report 7650312-3 (Version None)
Quarter: 2011Q3

REPORT INFORMATION
  Report Type: 
  Country: None (occurrence: None)
  Receive Date: 20110802
  Receipt Date: 20110719
  Transmission Date: 20111222
  Serious: Yes (Hospitalization, Other)
  Sender: FDA-Public Use
  Company Number: JP-AMGEN-US339174

PATIENT
  Age: 59 Year
  Sex: Female
  Weight: 70 kg

DRUGS (24)
  1. PREDNISOLONE [Concomitant]
     Dosage: UNK
     Route: 048
     Dates: start: 20081204, end: 20090304
  2. PREDNISOLONE [Concomitant]
     Dosage: UNK
     Route: 048
     Dates: start: 20070101, end: 20080819
  3. ISONIAZID [Concomitant]
     Dosage: UNK
     Route: 048
     Dates: start: 20080904
  4. RIBOFLAVIN TAB [Concomitant]
     Dosage: UNK
     Route: 048
     Dates: start: 20080904
  5. PREDNISOLONE [Concomitant]
     Dosage: UNK
     Route: 048
     Dates: start: 20080820, end: 20081203
  6. AZULFIDINE [Concomitant]
     Dosage: UNK
     Route: 048
     Dates: start: 20070101
  7. ENBREL [Suspect]
     Indication: RHEUMATOID ARTHRITIS
     Dosage: 25.0 MG, 2X/WK
     Route: 058
     Dates: start: 20080904, end: 20081103
  8. PREDNISOLONE [Concomitant]
     Dosage: UNK
     Route: 048
     Dates: start: 20081204, end: 20090107
  9. PREDNISOLONE [Concomitant]
     Dosage: UNK
     Route: 048
     Dates: start: 20081204, end: 20090304
  10. PREDNISOLONE [Concomitant]
     Dosage: UNK
     Route: 048
     Dates: start: 20070101, end: 20080819
  11. CELESTAMINE TAB [Concomitant]
     Dosage: UNK
     Route: 048
     Dates: start: 20080904
  12. ENBREL [Suspect]
     Dosage: 25.0 MG, 1X/WK
     Route: 058
     Dates: start: 20081105, end: 20090305
  13. POLYCARBOPHIL CALCIUM [Concomitant]
     Dosage: UNK
     Route: 048
     Dates: start: 20080904, end: 20090304
  14. PREDNISOLONE [Concomitant]
     Dosage: UNK
     Route: 048
     Dates: start: 20081204, end: 20090107
  15. PREDNISOLONE [Concomitant]
     Dosage: UNK
     Route: 048
     Dates: start: 20080820, end: 20081203
  16. MEXILETINE HYDROCHLORIDE [Concomitant]
     Dosage: UNK
     Route: 048
     Dates: start: 20080904, end: 20090304
  17. ALENDRONATE SODIUM [Concomitant]
     Dosage: UNK
     Route: 048
     Dates: start: 20080904, end: 20090304
  18. PREDNISOLONE [Concomitant]
     Dosage: UNK
     Route: 048
     Dates: start: 20090108, end: 20090304
  19. INFREE [Concomitant]
     Dosage: UNK
     Route: 048
     Dates: start: 20080904
  20. ACTOS [Concomitant]
     Dosage: UNK
     Route: 048
     Dates: start: 20080904
  21. OMEPRAZOLE [Concomitant]
     Dosage: UNK
     Route: 048
     Dates: start: 20080904
  22. PREDNISOLONE [Concomitant]
     Dosage: UNK
     Route: 048
     Dates: start: 20090108, end: 20090304
  23. PROGRAF [Concomitant]
     Dosage: UNK
     Route: 048
     Dates: start: 20080904
  24. PROGRAF [Concomitant]
     Dosage: UNK
     Route: 048
     Dates: start: 20070101, end: 20080903

REACTIONS (3)
  - DEMYELINATION [None]
  - VASCULITIS [None]
  - MYELITIS [None]
